FAERS Safety Report 23619882 (Version 1)
Quarter: 2024Q1

REPORT INFORMATION
  Report Type: Report from Study
  Country: IT (occurrence: IT)
  Receive Date: 20240312
  Receipt Date: 20240312
  Transmission Date: 20240410
  Serious: Yes (Other)
  Sender: FDA-Public Use
  Company Number: None

PATIENT
  Age: 7 Year
  Sex: Female
  Weight: 38 kg

DRUGS (2)
  1. METHOTREXATE [Suspect]
     Active Substance: METHOTREXATE
     Indication: B-cell type acute leukaemia
     Dosage: METOTRESSATO TEVA??590 MG INFUSION OVER 30 MIN. + 5370 MG CONTINUOUS SLOW INFUSION OVER 23.5 HOUR...
     Route: 042
     Dates: start: 20231219, end: 20240124
  2. PURINETHOL [Concomitant]
     Active Substance: MERCAPTOPURINE
     Indication: B-cell type acute leukaemia
     Route: 048
     Dates: start: 20231211

REACTIONS (3)
  - Thrombocytopenia [Unknown]
  - Alanine aminotransferase increased [Not Recovered/Not Resolved]
  - Eosinophilia [Not Recovered/Not Resolved]

NARRATIVE: CASE EVENT DATE: 20231228
